FAERS Safety Report 6971124-X (Version None)
Quarter: 2010Q3

REPORT INFORMATION
  Report Type: 
  Country: None (occurrence: None)
  Receive Date: 20100908
  Receipt Date: 20100901
  Transmission Date: 20110219
  Serious: Yes (Life-Threatening, Hospitalization)
  Sender: FDA-Public Use
  Company Number: RU-US-EMD SERONO, INC.-7015282

PATIENT
  Sex: Male
  Weight: 70 kg

DRUGS (2)
  1. REBIF [Suspect]
     Indication: SECONDARY PROGRESSIVE MULTIPLE SCLEROSIS
     Route: 058
     Dates: start: 20100301
  2. PREDNISOLONE [Concomitant]

REACTIONS (6)
  - NYSTAGMUS [None]
  - POLLAKIURIA [None]
  - THIRST [None]
  - TYPE 1 DIABETES MELLITUS [None]
  - VISUAL ACUITY REDUCED [None]
  - WEIGHT DECREASED [None]
